FAERS Safety Report 5812437-4 (Version None)
Quarter: 2008Q3

REPORT INFORMATION
  Report Type: 
  Country: None (occurrence: None)
  Receive Date: 20080711
  Receipt Date: 20080702
  Transmission Date: 20090109
  Serious: Yes (Other)
  Sender: FDA-Public Use
  Company Number: 2008AP000305

PATIENT
  Age: 29 Year
  Sex: Female

DRUGS (12)
  1. PAROXETINE HCL [Suspect]
     Dosage: QD PO, PO; QD, PO; QD, ORAL_LIQ; PO; QD, PO; QD
     Route: 048
     Dates: start: 20010109
  2. PAROXETINE HCL [Suspect]
     Dosage: QD PO, PO; QD, PO; QD, ORAL_LIQ; PO; QD, PO; QD
     Route: 048
     Dates: start: 20010109
  3. PAROXETINE HCL [Suspect]
     Dosage: QD PO, PO; QD, PO; QD, ORAL_LIQ; PO; QD, PO; QD
     Route: 048
     Dates: start: 20030106
  4. PAROXETINE HCL [Suspect]
     Dosage: QD PO, PO; QD, PO; QD, ORAL_LIQ; PO; QD, PO; QD
     Route: 048
     Dates: start: 20030530
  5. PAROXETINE HCL [Suspect]
     Dosage: QD PO, PO; QD, PO; QD, ORAL_LIQ; PO; QD, PO; QD
     Route: 048
     Dates: start: 20050304
  6. CITALOPRAM HYDROBROMIDE [Concomitant]
  7. DIAZEPAM [Concomitant]
  8. HYDROXYZINE [Concomitant]
  9. MIRTAZAPINE [Concomitant]
  10. FLUOXETINE HCL [Concomitant]
  11. BUSPIRONE HCL [Concomitant]
  12. PROCHLORPERAZINE MALEATE [Concomitant]

REACTIONS (12)
  - ABDOMINAL PAIN UPPER [None]
  - ADVERSE EVENT [None]
  - ANOREXIA [None]
  - ANXIETY [None]
  - DRUG WITHDRAWAL SYNDROME [None]
  - EATING DISORDER [None]
  - FEELING ABNORMAL [None]
  - INFLUENZA LIKE ILLNESS [None]
  - LOSS OF CONSCIOUSNESS [None]
  - SENSORY DISTURBANCE [None]
  - SOCIAL AVOIDANT BEHAVIOUR [None]
  - TREMOR [None]
